FAERS Safety Report 6177605-3 (Version None)
Quarter: 2009Q2

REPORT INFORMATION
  Report Type: 
  Country: None (occurrence: None)
  Receive Date: 20090504
  Receipt Date: 20090429
  Transmission Date: 20091009
  Serious: No
  Sender: FDA-Public Use
  Company Number: US-B.I. PHARMACEUTICALS,INC./RIDGEFIELD-2009-BP-05467BP

PATIENT
  Sex: Male

DRUGS (7)
  1. SPIRIVA [Suspect]
     Indication: CHRONIC OBSTRUCTIVE PULMONARY DISEASE
     Dosage: 18MCG
     Route: 055
     Dates: start: 20090101
  2. COUMADIN [Concomitant]
     Indication: ARRHYTHMIA
  3. COREG [Concomitant]
     Indication: ARRHYTHMIA
  4. LISINOPRIL [Concomitant]
  5. LASIX [Concomitant]
     Indication: OEDEMA
  6. FENTANYL TRANSDERMAL SYSTEM [Concomitant]
     Indication: ABDOMINAL PAIN LOWER
  7. PERCOCET [Concomitant]
     Indication: ABDOMINAL PAIN LOWER

REACTIONS (1)
  - PARAESTHESIA [None]
